FAERS Safety Report 9843583 (Version 2)
Quarter: 2013Q4

REPORT INFORMATION
  Report Type: Spontaneous
  Country: US (occurrence: None)
  Receive Date: 20131223
  Receipt Date: 20131223
  Transmission Date: 20140711
  Serious: Yes (Other)
  Sender: FDA-Public Use
  Company Number: 219948LEO

PATIENT
  Sex: Female

DRUGS (1)
  1. PICATO (0.05 %, GEL) [Suspect]
     Indication: ACTINIC KERATOSIS
     Dosage: (1 IN 1 D), TOPICAL
     Route: 061
     Dates: start: 20121211, end: 20121213

REACTIONS (5)
  - Off label use [None]
  - Application site vesicles [None]
  - Application site pain [None]
  - Drug administration error [None]
  - Incorrect drug administration duration [None]
